FAERS Safety Report 7647877-4 (Version None)
Quarter: 2011Q3

REPORT INFORMATION
  Report Type: 
  Country: None (occurrence: None)
  Receive Date: 20110801
  Receipt Date: 20110721
  Transmission Date: 20111222
  Serious: Yes (Hospitalization, Other)
  Sender: FDA-Public Use
  Company Number: US-AMGEN-KDL414336

PATIENT
  Age: 47 Year
  Sex: Female

DRUGS (3)
  1. PREDNISONE [Concomitant]
  2. ENBREL [Suspect]
     Indication: RHEUMATOID ARTHRITIS
     Dosage: 25 MG, 2 TIMES/WK
     Route: 058
     Dates: start: 20000101
  3. ENBREL [Suspect]
     Dates: start: 20000101

REACTIONS (10)
  - LACERATION [None]
  - STAPHYLOCOCCAL INFECTION [None]
  - NASOPHARYNGITIS [None]
  - HUMERUS FRACTURE [None]
  - ROTATOR CUFF SYNDROME [None]
  - JOINT DESTRUCTION [None]
  - INJECTION SITE ERYTHEMA [None]
  - INJECTION SITE SWELLING [None]
  - RHEUMATOID ARTHRITIS [None]
  - INJECTION SITE PRURITUS [None]
